FAERS Safety Report 8507537 (Version 2)
Quarter: 2013Q3

REPORT INFORMATION
  Report Type: Spontaneous
  Country: US (occurrence: US)
  Receive Date: 20120412
  Receipt Date: 20130924
  Transmission Date: 20140515
  Serious: Yes (Other)
  Sender: FDA-Public Use
  Company Number: US-ASTRAZENECA-2012SE08658

PATIENT
  Age: 43 Year
  Sex: Female
  Weight: 84.8 kg

DRUGS (16)
  1. NEXIUM [Suspect]
     Indication: GASTROOESOPHAGEAL REFLUX DISEASE
     Route: 048
     Dates: end: 201302
  2. HYDROCHLOROTHIAZIDE [Suspect]
     Indication: BLOOD PRESSURE ABNORMAL
     Route: 048
  3. TOPOMAX [Concomitant]
     Indication: HEADACHE
     Route: 048
  4. FUROSEMIDE [Concomitant]
     Indication: SWELLING
     Route: 048
  5. LORTAB [Concomitant]
     Indication: PAIN
     Dosage: 5.5/500MG PRN
     Route: 048
  6. MECLIZINE [Concomitant]
     Indication: DIZZINESS
     Route: 048
  7. PHENERGAN [Concomitant]
     Indication: NAUSEA
     Route: 048
  8. AZOPT [Concomitant]
     Indication: GLAUCOMA
     Dosage: 1 DROP EACH EYE BID
  9. AZOPT [Concomitant]
     Indication: CATARACT
     Dosage: 1 DROP EACH EYE BID
  10. METFORMIN [Concomitant]
     Indication: DIABETES MELLITUS
     Dates: start: 2003
  11. GLIPIZIDE [Concomitant]
     Indication: DIABETES MELLITUS
     Route: 048
     Dates: start: 2003
  12. GLIMEPIRIDE [Concomitant]
     Indication: DIABETES MELLITUS
     Route: 048
     Dates: start: 2003
  13. HUMALOG [Concomitant]
     Indication: DIABETES MELLITUS
     Dosage: 25/75, 24 UNITS EVERY MORNING
     Route: 048
     Dates: start: 2003
  14. HUMALOG [Concomitant]
     Indication: DIABETES MELLITUS
     Dosage: 25/75,10 UNITS EVERY PM DAILY
     Route: 048
     Dates: start: 2003
  15. TRIMODONE [Concomitant]
     Indication: PAIN
     Route: 048
  16. AMBIEN [Concomitant]
     Indication: SLEEP DISORDER
     Route: 048

REACTIONS (10)
  - Sleep apnoea syndrome [Unknown]
  - Multiple allergies [Unknown]
  - Dyspepsia [Not Recovered/Not Resolved]
  - Eating disorder [Not Recovered/Not Resolved]
  - Chest discomfort [Not Recovered/Not Resolved]
  - Diabetes mellitus [Unknown]
  - Hypertension [Unknown]
  - Fibromyalgia [Unknown]
  - Malaise [Unknown]
  - Drug dose omission [Unknown]
